FAERS Safety Report 8557360 (Version 8)
Quarter: 2015Q4

REPORT INFORMATION
  Report Type: Report from Study
  Country: CR (occurrence: CR)
  Receive Date: 20120511
  Receipt Date: 20151006
  Transmission Date: 20160305
  Serious: Yes (Hospitalization)
  Sender: FDA-Public Use
  Company Number: PHHO2012CR006961

PATIENT
  Age: 51 Year
  Sex: Female
  Weight: 69 kg

DRUGS (7)
  1. ALISKIREN [Suspect]
     Active Substance: ALISKIREN
     Dosage: UNK
     Route: 048
     Dates: start: 20100105
  2. ENALAPRIL [Concomitant]
     Active Substance: ENALAPRIL
     Indication: CARDIAC FAILURE
     Dosage: 10 MG, BID
     Route: 048
     Dates: end: 20140313
  3. FUROSEMIDE. [Suspect]
     Active Substance: FUROSEMIDE
     Indication: DYSPNOEA
     Dosage: 10 MG, UNK
     Route: 048
     Dates: start: 20100618, end: 20140313
  4. COREG [Concomitant]
     Active Substance: CARVEDILOL
     Indication: CARDIAC FAILURE
     Dosage: 25 MG, BID
     Route: 048
     Dates: end: 20140313
  5. SPIRONOLACTONE. [Concomitant]
     Active Substance: SPIRONOLACTONE
     Indication: CARDIAC FAILURE
     Dosage: 25 MG, UNK
     Route: 048
     Dates: end: 20140313
  6. DIGOXINE [Concomitant]
     Active Substance: DIGOXIN
     Indication: CARDIAC FAILURE
     Dosage: 0.625 MG, UNK
     Route: 048
     Dates: end: 20140313
  7. ASPIRIN. [Concomitant]
     Active Substance: ASPIRIN
     Indication: PROPHYLAXIS
     Dosage: 100 MG, UNK
     Route: 048
     Dates: end: 20140313

REACTIONS (2)
  - Syncope [Recovered/Resolved]
  - Syncope [Recovered/Resolved]

NARRATIVE: CASE EVENT DATE: 20120503
